FAERS Safety Report 14124133 (Version 2)
Quarter: 2017Q4

REPORT INFORMATION
  Report Type: Spontaneous
  Country: CN (occurrence: CN)
  Receive Date: 20171025
  Receipt Date: 20171027
  Transmission Date: 20180321
  Serious: Yes (Hospitalization, Other)
  Sender: FDA-Public Use
  Company Number: CN-PFIZER INC-2017454806

PATIENT
  Age: 80 Year
  Sex: Male

DRUGS (3)
  1. MILRINONE [Suspect]
     Active Substance: MILRINONE
     Indication: CARDIAC FAILURE
     Dosage: UNK
     Dates: start: 20170929
  2. LIPITOR [Suspect]
     Active Substance: ATORVASTATIN CALCIUM
     Indication: CORONARY ARTERY DISEASE
     Dosage: 20 MG, DAILY
     Route: 048
     Dates: end: 20171017
  3. LIPITOR [Suspect]
     Active Substance: ATORVASTATIN CALCIUM
     Indication: DIABETES MELLITUS

REACTIONS (3)
  - Blood uric acid increased [Unknown]
  - Rhabdomyolysis [Recovering/Resolving]
  - Oliguria [Recovering/Resolving]

NARRATIVE: CASE EVENT DATE: 20171003
